FAERS Safety Report 9841056 (Version 1)
Quarter: 2014Q1

REPORT INFORMATION
  Report Type: Spontaneous
  Country: US (occurrence: None)
  Receive Date: 20140123
  Receipt Date: 20140123
  Transmission Date: 20141002
  Serious: Yes (Life-Threatening, Hospitalization)
  Sender: FDA-Public Use
  Company Number: None

PATIENT
  Age: 62 Year
  Sex: Male

DRUGS (9)
  1. FLUPHENAZINE [Suspect]
     Dosage: MONTHS-YEARS
     Route: 048
  2. PCA FENTANYL [Concomitant]
  3. ZOSYN [Concomitant]
  4. POTASSIUM CHLORIDE [Concomitant]
  5. SODIUM BICARBONATE [Concomitant]
  6. VANCOMYCIN [Concomitant]
  7. INSULIN ASPART SLIDING SCALE [Concomitant]
  8. LACTULOSE [Concomitant]
  9. MEROPENEM [Concomitant]

REACTIONS (5)
  - Supraventricular tachycardia [None]
  - Atrial flutter [None]
  - Pulse absent [None]
  - Ventricular tachycardia [None]
  - Ventricular fibrillation [None]
